FAERS Safety Report 23127502 (Version 1)
Quarter: 2023Q4

REPORT INFORMATION
  Report Type: Spontaneous
  Country: US (occurrence: US)
  Receive Date: 20231031
  Receipt Date: 20231031
  Transmission Date: 20240110
  Serious: No
  Sender: FDA-Public Use
  Company Number: US-drreddys-LIT/USA/23/0176930

PATIENT
  Age: 30 Year
  Sex: Male

DRUGS (20)
  1. DIPHENHYDRAMINE [Suspect]
     Active Substance: DIPHENHYDRAMINE
     Indication: Urticaria
     Dosage: 25MG DAILY
  2. DIPHENHYDRAMINE [Suspect]
     Active Substance: DIPHENHYDRAMINE
     Dosage: SUBSEQUENTLY, HE RECEIVED TREATMENT WITH DIPHENHYDRAMINE UNKNOWN DOSE
  3. LEVOCETIRIZINE DIHYDROCHLORIDE [Suspect]
     Active Substance: LEVOCETIRIZINE DIHYDROCHLORIDE
     Indication: Urticaria
     Dosage: DAILY TREATMENT
  4. LEVOCETIRIZINE DIHYDROCHLORIDE [Suspect]
     Active Substance: LEVOCETIRIZINE DIHYDROCHLORIDE
     Indication: Hypersensitivity
     Dosage: SUBSEQUENTLY, HE RECEIVED TREATMENT WITH LEVOCETIRIZINE UNKNOWN DOSE
  5. LEVOCETIRIZINE DIHYDROCHLORIDE [Suspect]
     Active Substance: LEVOCETIRIZINE DIHYDROCHLORIDE
     Indication: Sinus polyp
  6. FEXOFENADINE [Suspect]
     Active Substance: FEXOFENADINE HYDROCHLORIDE
     Indication: Urticaria
     Dosage: DAILY TREATMENT
  7. FEXOFENADINE [Suspect]
     Active Substance: FEXOFENADINE HYDROCHLORIDE
     Indication: Hypersensitivity
     Dosage: SUBSEQUENTLY, HE RECEIVED TREATMENT WITH FEXOFENADINE
  8. FEXOFENADINE [Suspect]
     Active Substance: FEXOFENADINE HYDROCHLORIDE
     Indication: Sinus polyp
  9. MONTELUKAST [Suspect]
     Active Substance: MONTELUKAST SODIUM
     Indication: Hypersensitivity
     Dosage: DAILY TREATMENT
  10. MONTELUKAST [Suspect]
     Active Substance: MONTELUKAST SODIUM
     Indication: Sinus polyp
  11. PREDNISONE [Suspect]
     Active Substance: PREDNISONE
     Indication: Urticaria
     Dosage: DAILY TREATMENT
  12. PREDNISONE [Suspect]
     Active Substance: PREDNISONE
     Indication: Hypersensitivity
     Dosage: 40MG FOR 5 DAYS
  13. PREDNISONE [Suspect]
     Active Substance: PREDNISONE
     Indication: Sinus polyp
     Dosage: TAPER
  14. PREDNISONE [Suspect]
     Active Substance: PREDNISONE
     Dosage: 40MG FOR 3 DAYS
  15. BETAMETHASONE [Suspect]
     Active Substance: BETAMETHASONE
     Indication: Urticaria
     Dosage: BETAMETHASONE 0.05% TWICE DAILY
     Route: 061
  16. BETAMETHASONE [Suspect]
     Active Substance: BETAMETHASONE
     Dosage: SUBSEQUENTLY, HE RECEIVED TREATMENT WITH TOPICAL BETAMETHASONE UNKNOWN DOSE
     Route: 061
  17. BETAMETHASONE [Suspect]
     Active Substance: BETAMETHASONE
     Dosage: TOPICAL BETAMETHASONE 0.05%
     Route: 061
  18. FLUTICASONE PROPIONATE [Suspect]
     Active Substance: FLUTICASONE PROPIONATE
     Indication: Hypersensitivity
     Dosage: DAILY TREATMENT
  19. FLUTICASONE PROPIONATE [Suspect]
     Active Substance: FLUTICASONE PROPIONATE
     Indication: Sinus polyp
  20. DUPILUMAB [Concomitant]
     Active Substance: DUPILUMAB
     Indication: Sinus polyp

REACTIONS (1)
  - Drug ineffective [Unknown]
